FAERS Safety Report 14636672 (Version 28)
Quarter: 2020Q1

REPORT INFORMATION
  Report Type: Spontaneous
  Country: CA (occurrence: CA)
  Receive Date: 20180314
  Receipt Date: 20200325
  Transmission Date: 20200409
  Serious: Yes (Hospitalization, Other)
  Sender: FDA-Public Use
  Company Number: CA-CELLTRION INC.-2018CA018543

PATIENT

DRUGS (35)
  1. INFLECTRA [Suspect]
     Active Substance: INFLIXIMAB-DYYB
     Dosage: 500 MG, WEEKS 0, 2, 6 WEEKS AND EVERY 8 WEEKS
     Route: 042
     Dates: start: 20180412, end: 20180412
  2. INFLECTRA [Suspect]
     Active Substance: INFLIXIMAB-DYYB
     Dosage: 400 MG, EVERY 4 WEEKS
     Route: 042
  3. INFLECTRA [Suspect]
     Active Substance: INFLIXIMAB-DYYB
     Dosage: 500 MG WEEKS 0, 2, 6 WEEKS AND EVERY 8 WEEKS
     Route: 042
     Dates: start: 20180906, end: 20180906
  4. INFLECTRA [Suspect]
     Active Substance: INFLIXIMAB-DYYB
     Dosage: 10 MG/KG EVERY 6 WEEKS
     Route: 042
     Dates: start: 20181112, end: 20181112
  5. INFLECTRA [Suspect]
     Active Substance: INFLIXIMAB-DYYB
     Dosage: 10 MG/KG EVERY 6 WEEKS
     Route: 042
     Dates: start: 20190725, end: 20190725
  6. SOLU-CORTEF [Concomitant]
     Active Substance: HYDROCORTISONE SODIUM SUCCINATE
     Indication: COLITIS ULCERATIVE
     Dosage: UNK
     Route: 065
     Dates: start: 20180215
  7. INFLECTRA [Suspect]
     Active Substance: INFLIXIMAB-DYYB
     Dosage: 500 MG, WEEKS 0, 2, 6 WEEKS AND EVERY 8 WEEKS
     Route: 042
     Dates: start: 20180314, end: 20180314
  8. INFLECTRA [Suspect]
     Active Substance: INFLIXIMAB-DYYB
     Dosage: 480 MG, EVERY 4 WEEKS
     Route: 042
     Dates: start: 20181004, end: 20181004
  9. INFLECTRA [Suspect]
     Active Substance: INFLIXIMAB-DYYB
     Dosage: 10 MG/KG EVERY 4 WEEKS
     Route: 042
     Dates: start: 20190905, end: 20190905
  10. INFLECTRA [Suspect]
     Active Substance: INFLIXIMAB-DYYB
     Dosage: 10 MG/KG EVERY 6 WEEKS
     Route: 042
     Dates: start: 20191128, end: 20191128
  11. CALCIUM [Concomitant]
     Active Substance: CALCIUM
     Dosage: UNK
     Route: 065
  12. INFLECTRA [Suspect]
     Active Substance: INFLIXIMAB-DYYB
     Indication: COLITIS ULCERATIVE
     Dosage: 200 MG, WEEKS 0, 2, 6
     Route: 042
     Dates: start: 20180301, end: 20180301
  13. INFLECTRA [Suspect]
     Active Substance: INFLIXIMAB-DYYB
     Dosage: 500 MG, WEEKS 0, 2, 6 WEEKS AND EVERY 8 WEEKS
     Route: 042
     Dates: start: 20180412, end: 20180607
  14. INFLECTRA [Suspect]
     Active Substance: INFLIXIMAB-DYYB
     Dosage: 470MG (10MG/KG), EVERY 4 WEEKS
     Route: 042
     Dates: start: 20180712, end: 20190905
  15. INFLECTRA [Suspect]
     Active Substance: INFLIXIMAB-DYYB
     Dosage: 10 MG/KG EVERY 6 WEEKS
     Route: 042
     Dates: start: 20190321, end: 20190321
  16. INFLECTRA [Suspect]
     Active Substance: INFLIXIMAB-DYYB
     Dosage: 500 MG, WEEKS 0, 2, 6 WEEKS AND EVERY 8 WEEKS
     Route: 042
     Dates: start: 20180607, end: 20180607
  17. INFLECTRA [Suspect]
     Active Substance: INFLIXIMAB-DYYB
     Dosage: 10.1MG/KG, EVERY 0,2,6 WEEKS AND EVERY 8 WEEKS
     Route: 042
     Dates: start: 20180809, end: 20180809
  18. INFLECTRA [Suspect]
     Active Substance: INFLIXIMAB-DYYB
     Dosage: 10 MG/KG EVERY 6 WEEKS
     Route: 042
     Dates: start: 20190618, end: 20190618
  19. TYLENOL [Concomitant]
     Active Substance: ACETAMINOPHEN
     Indication: HEADACHE
     Dosage: 500 MG, AS NEEDED
     Route: 065
  20. ACETAMINOPHEN. [Concomitant]
     Active Substance: ACETAMINOPHEN
     Indication: PREMEDICATION
     Dosage: 650 MG, UNK
     Route: 048
     Dates: start: 20180809
  21. SOLU-MEDROL [Concomitant]
     Active Substance: METHYLPREDNISOLONE SODIUM SUCCINATE
     Dosage: UNK
     Route: 042
     Dates: start: 201802
  22. ALESSE 28 [Concomitant]
     Active Substance: ETHINYL ESTRADIOL\LEVONORGESTREL
     Dosage: UNK
     Route: 065
  23. IMURAN [Concomitant]
     Active Substance: AZATHIOPRINE
     Dosage: 100 MG, UNK
     Route: 065
     Dates: start: 20180307
  24. PENTASA [Concomitant]
     Active Substance: MESALAMINE
     Dosage: UNK
     Route: 065
  25. INFLECTRA [Suspect]
     Active Substance: INFLIXIMAB-DYYB
     Dosage: 10 MG/KG EVERY 6 WEEKS
     Route: 042
     Dates: start: 20191012, end: 20191128
  26. INFLECTRA [Suspect]
     Active Substance: INFLIXIMAB-DYYB
     Dosage: 10 MG/KG EVERY 6 WEEKS
     Route: 042
     Dates: start: 20191017, end: 20191017
  27. INFLECTRA [Suspect]
     Active Substance: INFLIXIMAB-DYYB
     Dosage: 500 MG  0, 2 AND 4 WEEKS, THEN EVERY 4 WEEKS
     Route: 042
     Dates: start: 20191230, end: 20191230
  28. IRON [Concomitant]
     Active Substance: IRON
     Indication: ANAEMIA
     Dosage: UNK, WEEKLY
     Route: 065
     Dates: start: 2018
  29. PREDNISONE. [Concomitant]
     Active Substance: PREDNISONE
     Dosage: UNK
     Route: 065
     Dates: start: 2014
  30. STATEX [Concomitant]
     Dosage: 5 MG, UNK (P13 5MG 150 TAB)
     Dates: start: 201912
  31. INFLECTRA [Suspect]
     Active Substance: INFLIXIMAB-DYYB
     Dosage: 10 MG/KG EVERY 6 WEEKS
     Route: 042
     Dates: start: 20190314, end: 20190314
  32. INFLECTRA [Suspect]
     Active Substance: INFLIXIMAB-DYYB
     Dosage: 500 MG  0, 2 AND 4 WEEKS, THEN EVERY 4 WEEKS
     Route: 042
     Dates: start: 20191221, end: 20191221
  33. INFLECTRA [Suspect]
     Active Substance: INFLIXIMAB-DYYB
     Dosage: 500 MG  0, 2 AND 4 WEEKS, THEN EVERY 4 WEEKS
     Route: 042
     Dates: start: 20200110
  34. VITAMIN D [COLECALCIFEROL] [Concomitant]
     Active Substance: CHOLECALCIFEROL
     Dosage: UNK
     Route: 065
  35. SALOFALK [Concomitant]
     Dosage: 1 G, AS NEEDED (HS)
     Route: 054
     Dates: start: 201912

REACTIONS (27)
  - Condition aggravated [Unknown]
  - Drug level increased [Unknown]
  - Diarrhoea [Not Recovered/Not Resolved]
  - Weight increased [Not Recovered/Not Resolved]
  - Chlamydial infection [Recovered/Resolved]
  - Haematochezia [Not Recovered/Not Resolved]
  - Off label use [Unknown]
  - Incorrect dose administered [Unknown]
  - Sedation [Unknown]
  - Anaemia [Unknown]
  - Vomiting [Recovered/Resolved]
  - Abdominal pain [Not Recovered/Not Resolved]
  - Fatigue [Unknown]
  - Intentional product use issue [Unknown]
  - Dehydration [Unknown]
  - Facial bones fracture [Unknown]
  - Dislocation of vertebra [Unknown]
  - Headache [Unknown]
  - Blood pressure fluctuation [Unknown]
  - Malaise [Unknown]
  - Product use issue [Unknown]
  - Condition aggravated [Not Recovered/Not Resolved]
  - Cough [Unknown]
  - Body temperature fluctuation [Unknown]
  - Clostridium difficile infection [Unknown]
  - Concussion [Unknown]
  - Dizziness [Recovering/Resolving]

NARRATIVE: CASE EVENT DATE: 2018
